FAERS Safety Report 10686900 (Version 1)
Quarter: 2015Q1

REPORT INFORMATION
  Report Type: Report from Study
  Country: US (occurrence: US)
  Receive Date: 20150102
  Receipt Date: 20150102
  Transmission Date: 20150720
  Serious: Yes (Other)
  Sender: FDA-Public Use
  Company Number: US-009507513-1412USA013778

PATIENT
  Age: 74 Year

DRUGS (2)
  1. VELCADE [Suspect]
     Active Substance: BORTEZOMIB
     Indication: PLASMA CELL MYELOMA
     Dosage: 1.3 MG/M2, 1X WEEKLY, NO REST PERIOD: D1 Q 7 DAYS
     Route: 042
     Dates: start: 20110311, end: 20111006
  2. DEXAMETHASONE. [Suspect]
     Active Substance: DEXAMETHASONE
     Indication: PLASMA CELL MYELOMA
     Dosage: 20 MG, DAY 1, 2, 8, 9, 15, 16
     Route: 048
     Dates: start: 20110311, end: 20111008

REACTIONS (1)
  - Dyspnoea [Unknown]

NARRATIVE: CASE EVENT DATE: 20110502
